FAERS Safety Report 8470577-8 (Version None)
Quarter: 2012Q2

REPORT INFORMATION
  Report Type: 
  Country: None (occurrence: None)
  Receive Date: 20120627
  Receipt Date: 20120622
  Transmission Date: 20120825
  Serious: Yes (Other)
  Sender: FDA-Public Use
  Company Number: PHEH2012US012454

PATIENT
  Sex: Male

DRUGS (1)
  1. RECLAST [Suspect]
     Route: 042

REACTIONS (5)
  - INTRACRANIAL HYPOTENSION [None]
  - DYSSTASIA [None]
  - FACE OEDEMA [None]
  - NAUSEA [None]
  - HEADACHE [None]
